FAERS Safety Report 14682432 (Version 1)
Quarter: 2018Q1

REPORT INFORMATION
  Report Type: Spontaneous
  Country: US (occurrence: US)
  Receive Date: 20180326
  Receipt Date: 20180326
  Transmission Date: 20180509
  Serious: Yes (Other)
  Sender: FDA-Public Use
  Company Number: US-009507513-1701USA000930

PATIENT
  Age: 32 Year

DRUGS (1)
  1. TEMODAR [Suspect]
     Active Substance: TEMOZOLOMIDE
     Indication: PITUITARY TUMOUR
     Dosage: 100 MG/M2 DAILY (GIVEN ON ALTERNATE WEEKS IN A METRONOMIC FASHION), TO 200 MG/M2 DAILY ON ALTERNATE
     Route: 048

REACTIONS (5)
  - Anaemia [Unknown]
  - Off label use [Unknown]
  - Thrombocytopenia [Unknown]
  - Neutropenia [Unknown]
  - Leukopenia [Unknown]
